FAERS Safety Report 17245311 (Version 1)
Quarter: 2020Q1

REPORT INFORMATION
  Report Type: Spontaneous
  Country: US (occurrence: US)
  Receive Date: 20200108
  Receipt Date: 20200108
  Transmission Date: 20200409
  Serious: No
  Sender: FDA-Public Use
  Company Number: US-LUPIN PHARMACEUTICALS INC.-2019-07573

PATIENT
  Age: 9 Month
  Sex: Female

DRUGS (1)
  1. CEFDINIR FOR ORAL SUSPENSION USP 250 MG/5 ML [Suspect]
     Active Substance: CEFDINIR
     Indication: EAR INFECTION
     Dosage: 3 MILLIGRAM, QD
     Route: 048

REACTIONS (2)
  - No adverse event [Unknown]
  - Product storage error [Unknown]
